FAERS Safety Report 8502639-0 (Version None)
Quarter: 2012Q3

REPORT INFORMATION
  Report Type: 
  Country: None (occurrence: None)
  Receive Date: 20120711
  Receipt Date: 20120704
  Transmission Date: 20120928
  Serious: Yes (Other)
  Sender: FDA-Public Use
  Company Number: FR-PFIZER INC-2012160789

PATIENT
  Age: 73 Year
  Sex: Male

DRUGS (6)
  1. NEURONTIN [Suspect]
     Indication: NEURALGIA
     Dosage: 300 MG, 2X/DAY
     Route: 048
     Dates: start: 20120601, end: 20120703
  2. MORPHINE [Concomitant]
     Indication: PAIN MANAGEMENT
     Dosage: 3 CAPSULES
  3. NEXIUM [Concomitant]
     Dosage: UNK
  4. PLAVIX [Concomitant]
     Dosage: UNK
  5. NOVATREX ^LEDERLE^ [Concomitant]
     Dosage: UNK
  6. ATORVASTATIN [Concomitant]
     Dosage: UNK

REACTIONS (8)
  - TREMOR [None]
  - DYSKINESIA [None]
  - DRUG INEFFECTIVE [None]
  - GAIT DISTURBANCE [None]
  - AREFLEXIA [None]
  - CENTRAL NERVOUS SYSTEM LESION [None]
  - COORDINATION ABNORMAL [None]
  - DISORIENTATION [None]
